FAERS Safety Report 18493597 (Version 2)
Quarter: 2021Q1

REPORT INFORMATION
  Report Type: Spontaneous
  Country: US (occurrence: US)
  Receive Date: 20201111
  Receipt Date: 20210308
  Transmission Date: 20210419
  Serious: No
  Sender: FDA-Public Use
  Company Number: US-TAKEDA-2020TUS044740

PATIENT
  Sex: Female
  Weight: 77.1 kg

DRUGS (36)
  1. ACETAMINOPHEN. [Concomitant]
     Active Substance: ACETAMINOPHEN
  2. DIPHENHYDRAMINE. [Concomitant]
     Active Substance: DIPHENHYDRAMINE
  3. CEFDINIR. [Concomitant]
     Active Substance: CEFDINIR
  4. CLONAZEPAM. [Concomitant]
     Active Substance: CLONAZEPAM
  5. SIMVASTATIN. [Concomitant]
     Active Substance: SIMVASTATIN
  6. VITAMIN D3 [Concomitant]
     Active Substance: CHOLECALCIFEROL
  7. BENADRYL ALLERGY [CETIRIZINE HYDROCHLORIDE] [Concomitant]
     Active Substance: CETIRIZINE HYDROCHLORIDE
  8. PROAIR HFA [Concomitant]
     Active Substance: ALBUTEROL SULFATE
  9. CALCIUM [Concomitant]
     Active Substance: CALCIUM
  10. ZANTAC [Concomitant]
     Active Substance: RANITIDINE HYDROCHLORIDE
  11. ASPIRIN (E.C.) [Concomitant]
     Active Substance: ASPIRIN
  12. ANTI FUNGAL CREAM [CLOTRIMAZOLE] [Concomitant]
  13. ALEVE [Concomitant]
     Active Substance: NAPROXEN SODIUM
  14. RESTASIS [Concomitant]
     Active Substance: CYCLOSPORINE
  15. ADVAIR HFA [Concomitant]
     Active Substance: FLUTICASONE PROPIONATE\SALMETEROL XINAFOATE
  16. PROBIOTICS NOS [Concomitant]
     Active Substance: PROBIOTICS NOS
  17. GLUCOSAMIN + CHONDROITIN [Concomitant]
  18. DESONIDE. [Concomitant]
     Active Substance: DESONIDE
  19. LMX4 [Concomitant]
     Active Substance: LIDOCAINE
  20. FEXOFENADINE [Concomitant]
     Active Substance: FEXOFENADINE HYDROCHLORIDE
  21. MICARDIS [Concomitant]
     Active Substance: TELMISARTAN
  22. BIOTIN [Concomitant]
     Active Substance: BIOTIN
  23. OMEPRAZOLE. [Concomitant]
     Active Substance: OMEPRAZOLE
  24. OSPHENA [Concomitant]
     Active Substance: OSPEMIFENE
  25. ZANOVID [Concomitant]
  26. HYQVIA [Suspect]
     Active Substance: HUMAN IMMUNOGLOBULIN G\HYALURONIDASE RECOMBINANT HUMAN
     Indication: IMMUNODEFICIENCY COMMON VARIABLE
     Dosage: 30 GRAM, Q4WEEKS
     Route: 058
     Dates: start: 20170119
  27. EPINEPHRINE. [Concomitant]
     Active Substance: EPINEPHRINE
  28. ATENOLOL. [Concomitant]
     Active Substance: ATENOLOL
  29. MELOXICAM. [Concomitant]
     Active Substance: MELOXICAM
  30. NORMAL SALINE [Concomitant]
     Active Substance: SODIUM CHLORIDE
  31. FLUBLOK QUADRIVALENT NOS [Concomitant]
     Active Substance: INFLUENZA VIRUS VACCINE
  32. AFRIN [PHENYLEPHRINE HYDROCHLORIDE] [Concomitant]
     Active Substance: PHENYLEPHRINE HYDROCHLORIDE
  33. SALINE NASAL MIST [Concomitant]
  34. MULTIVITAMINS [VITAMINS NOS] [Concomitant]
     Active Substance: VITAMINS
  35. LIDOCAINE/PRILOCAINE [Concomitant]
     Active Substance: LIDOCAINE\PRILOCAINE
  36. FINACEA [Concomitant]
     Active Substance: AZELAIC ACID

REACTIONS (2)
  - Infection [None]
  - Poor venous access [Unknown]
